FAERS Safety Report 10402554 (Version 2)
Quarter: 2015Q1

REPORT INFORMATION
  Report Type: Spontaneous
  Country: DE (occurrence: DE)
  Receive Date: 20140822
  Receipt Date: 20150210
  Transmission Date: 20150720
  Serious: Yes (Death, Hospitalization)
  Sender: FDA-Public Use
  Company Number: DE-SA-2014SA110118

PATIENT
  Age: 60 Year
  Sex: Female

DRUGS (17)
  1. BEVACIZUMAB [Concomitant]
     Active Substance: BEVACIZUMAB
     Indication: NON-SMALL CELL LUNG CANCER
     Dosage: FORM: INFUSION
     Route: 042
     Dates: start: 20140606, end: 20140607
  2. FILGRASTIM [Concomitant]
     Active Substance: FILGRASTIM
     Dosage: DOSE: 30 MIO/UI
     Dates: start: 20140613, end: 20140618
  3. LYRICA [Concomitant]
     Active Substance: PREGABALIN
     Dates: start: 201306
  4. TOREM [Concomitant]
     Active Substance: TORSEMIDE
     Dates: start: 201307
  5. TAZOBAC [Concomitant]
     Active Substance: PIPERACILLIN SODIUM\TAZOBACTAM SODIUM
     Dates: start: 20140613
  6. ORAMORPH SR SUSTAINED RELEASE [Concomitant]
     Active Substance: MORPHINE SULFATE
     Dates: start: 20140627, end: 20140706
  7. FOSTER [Concomitant]
     Active Substance: BECLOMETHASONE\FORMOTEROL
     Dosage: DOSE: 200/12 UG
  8. SEEBRI BREEZHALER [Concomitant]
     Active Substance: GLYCOPYRROLATE
     Dates: start: 201212
  9. LYRICA [Concomitant]
     Active Substance: PREGABALIN
     Dates: start: 20140704
  10. SALBUTAMOL [Concomitant]
     Active Substance: ALBUTEROL
     Dosage: 0-100 UG TOTAL
     Dates: start: 2012
  11. ACC [Concomitant]
     Active Substance: ACETYLCYSTEINE
     Dates: start: 201301
  12. DIPYRONE [Concomitant]
     Active Substance: DIPYRONE
     Dates: start: 201307
  13. L-THYROXINE [Concomitant]
     Active Substance: LEVOTHYROXINE
  14. PANTOPRAZOLE [Concomitant]
     Active Substance: PANTOPRAZOLE SODIUM
     Dates: start: 201304
  15. ALLOPURINOL. [Concomitant]
     Active Substance: ALLOPURINOL
     Dates: start: 20130404
  16. DOCETAXEL. [Suspect]
     Active Substance: DOCETAXEL
     Indication: NON-SMALL CELL LUNG CANCER
     Route: 042
     Dates: start: 20140606, end: 20140706
  17. DAXAS [Concomitant]
     Active Substance: ROFLUMILAST
     Dates: start: 20140106

REACTIONS (1)
  - Fatigue [Fatal]

NARRATIVE: CASE EVENT DATE: 20140613
